FAERS Safety Report 8068262-X (Version None)
Quarter: 2012Q1

REPORT INFORMATION
  Report Type: 
  Country: None (occurrence: None)
  Receive Date: 20120124
  Receipt Date: 20111009
  Transmission Date: 20120608
  Serious: No
  Sender: FDA-Public Use
  Company Number: US-AMGEN-USASP2011052167

PATIENT
  Age: 75 Year
  Sex: Female

DRUGS (5)
  1. CHOLESTEROL HEALTH [Concomitant]
  2. VITAMIN D [Concomitant]
  3. PROLIA [Suspect]
     Indication: OSTEOPOROSIS POSTMENOPAUSAL
     Dosage: UNK
     Dates: start: 20110916
  4. CALCIUM [Concomitant]
  5. MULTIVITAMIN                       /00097801/ [Concomitant]

REACTIONS (1)
  - PAIN [None]
